FAERS Safety Report 4696889-1 (Version None)
Quarter: 2005Q2

REPORT INFORMATION
  Report Type: 
  Country: None (occurrence: None)
  Receive Date: 20050620
  Receipt Date: 20050203
  Transmission Date: 20051028
  Serious: Yes (Hospitalization)
  Sender: FDA-Public Use
  Company Number: 211909

PATIENT
  Age: 74 Year
  Sex: Female
  Weight: 66.5 kg

DRUGS (4)
  1. HERCEPTIN [Suspect]
     Indication: BREAST CANCER
     Dosage: 6 MG/KG, Q3W, INTRAVENOUS
     Route: 042
     Dates: start: 20040706, end: 20041221
  2. HERCEPTIN [Suspect]
     Dosage: 8 MG/KG, SINGLE, INTRAVENOUS
     Route: 042
     Dates: start: 20040615, end: 20040615
  3. HERCEPTIN [Suspect]
     Dosage: 6 MG/KG, Q3W, INTRAVENOUS
     Route: 042
     Dates: start: 20050118
  4. ADALAT [Concomitant]

REACTIONS (7)
  - ABDOMINAL DISTENSION [None]
  - CHEST DISCOMFORT [None]
  - DYSPEPSIA [None]
  - ELECTROCARDIOGRAM Q WAVES [None]
  - EPIGASTRIC DISCOMFORT [None]
  - GASTROOESOPHAGEAL REFLUX DISEASE [None]
  - MYOCARDIAL INFARCTION [None]
